FAERS Safety Report 7995513-X (Version None)
Quarter: 2011Q4

REPORT INFORMATION
  Report Type: 
  Country: None (occurrence: None)
  Receive Date: 20111217
  Receipt Date: 20111217
  Transmission Date: 20120403
  Serious: No
  Sender: FDA-Public Use
  Company Number: None

PATIENT

DRUGS (2)
  1. TRAZODONE HYDROCHLORIDE [Suspect]
     Dosage: TABLET ORAL 50 MG
     Route: 048
  2. ULTRAM [Suspect]
     Dosage: TABLET ORAL 50 MG
     Route: 048

REACTIONS (1)
  - MEDICATION ERROR [None]
